FAERS Safety Report 9748726 (Version 1)
Quarter: 2013Q4

REPORT INFORMATION
  Report Type: Spontaneous
  Country: US (occurrence: US)
  Receive Date: 20131212
  Receipt Date: 20131212
  Transmission Date: 20140711
  Serious: Yes (Other)
  Sender: FDA-Public Use
  Company Number: PHHY2013US143448

PATIENT
  Age: 3 Year
  Sex: Female

DRUGS (4)
  1. CICLOSPORIN [Suspect]
     Indication: RETINOBLASTOMA
  2. CARBOPLATIN [Interacting]
     Indication: RETINOBLASTOMA
     Dosage: 20 MG, IN 2 ML
  3. ETOPOSIDE [Interacting]
     Indication: RETINOBLASTOMA
  4. VINCRISTINE [Interacting]
     Indication: RETINOBLASTOMA

REACTIONS (3)
  - Arteriosclerotic retinopathy [Unknown]
  - Ocular vascular disorder [Unknown]
  - Drug interaction [Unknown]
